FAERS Safety Report 23422238 (Version 1)
Quarter: 2024Q1

REPORT INFORMATION
  Report Type: Spontaneous
  Country: US (occurrence: US)
  Receive Date: 20240119
  Receipt Date: 20240119
  Transmission Date: 20240409
  Serious: No
  Sender: FDA-Public Use
  Company Number: US-009507513-2401USA007481

PATIENT
  Age: 39 Year
  Sex: Male

DRUGS (5)
  1. TRUSOPT [Suspect]
     Active Substance: DORZOLAMIDE HYDROCHLORIDE
     Indication: Ocular hypertension
     Route: 061
  2. BRIMONIDINE [Suspect]
     Active Substance: BRIMONIDINE TARTRATE
     Indication: Ocular hypertension
     Route: 061
  3. TIMOLOL [Suspect]
     Active Substance: TIMOLOL
     Indication: Ocular hypertension
     Route: 061
  4. NETARSUDIL [Suspect]
     Active Substance: NETARSUDIL
     Indication: Ocular hypertension
     Dosage: UNK
     Route: 061
  5. LATANOPROST [Suspect]
     Active Substance: LATANOPROST
     Indication: Ocular hypertension
     Route: 061

REACTIONS (1)
  - Drug ineffective [Unknown]
